FAERS Safety Report 5735523-6 (Version None)
Quarter: 2008Q2

REPORT INFORMATION
  Report Type: 
  Country: None (occurrence: None)
  Receive Date: 20080512
  Receipt Date: 20080430
  Transmission Date: 20081010
  Serious: Yes (Hospitalization, Other)
  Sender: FDA-Public Use
  Company Number: US-PFIZER INC-2007103025

PATIENT
  Sex: Male

DRUGS (10)
  1. LYRICA [Suspect]
     Indication: NEUROPATHY PERIPHERAL
  2. ALLOPURINOL [Concomitant]
  3. FERROUS SULFATE TAB [Concomitant]
  4. FLUNISOLIDE [Concomitant]
  5. FUROSEMIDE [Concomitant]
  6. GLYBURIDE [Concomitant]
  7. ISOSORBIDE MONONITRATE [Concomitant]
  8. NEXIUM [Concomitant]
  9. FLOMAX [Concomitant]
  10. POTASSIUM CHLORIDE [Concomitant]

REACTIONS (10)
  - ABDOMINAL PAIN UPPER [None]
  - ASTHENIA [None]
  - DECREASED APPETITE [None]
  - DYSARTHRIA [None]
  - DYSPNOEA [None]
  - LOCAL SWELLING [None]
  - OXYGEN SATURATION DECREASED [None]
  - SOMNOLENCE [None]
  - SWELLING FACE [None]
  - WEIGHT INCREASED [None]
